FAERS Safety Report 4367240-1 (Version None)
Quarter: 2004Q2

REPORT INFORMATION
  Report Type: 
  Country: None (occurrence: None)
  Receive Date: 20040526
  Receipt Date: 20040511
  Transmission Date: 20050107
  Serious: Yes (Death)
  Sender: FDA-Public Use
  Company Number: 163-20785-04040592

PATIENT
  Age: 71 Year
  Sex: Female

DRUGS (1)
  1. THALOMID [Suspect]
     Indication: PANNICULITIS
     Dosage: 100 MG, DAILY, ORAL
     Route: 048
     Dates: start: 20040227, end: 20040405

REACTIONS (2)
  - DIVERTICULITIS [None]
  - SEPSIS [None]
